FAERS Safety Report 5162873-7 (Version None)
Quarter: 2006Q4

REPORT INFORMATION
  Report Type: 
  Country: None (occurrence: None)
  Receive Date: 20061201
  Receipt Date: 20061127
  Transmission Date: 20070319
  Serious: Yes (Other)
  Sender: FDA-Public Use
  Company Number: JP-JPN-A200605053

PATIENT
  Age: 82 Year
  Sex: Male

DRUGS (1)
  1. VALTREX [Suspect]
     Indication: HERPES ZOSTER
     Route: 048
     Dates: start: 20050101

REACTIONS (4)
  - AFFECT LABILITY [None]
  - HALLUCINATION [None]
  - PSYCHIATRIC SYMPTOM [None]
  - RESTLESSNESS [None]
